FAERS Safety Report 13644932 (Version 1)
Quarter: 2017Q2

REPORT INFORMATION
  Report Type: Spontaneous
  Country: US (occurrence: US)
  Receive Date: 20170612
  Receipt Date: 20170612
  Transmission Date: 20170830
  Serious: No
  Sender: FDA-Public Use
  Company Number: US-ROCHE-1367012

PATIENT
  Sex: Female

DRUGS (12)
  1. SYNTHROID [Concomitant]
     Active Substance: LEVOTHYROXINE SODIUM
  2. GAS-X EXTRA STRENGTH [Concomitant]
     Active Substance: DIMETHICONE
     Route: 065
  3. COMPAZINE [Concomitant]
     Active Substance: PROCHLORPERAZINE MALEATE
  4. LEVOTHYROXINE. [Concomitant]
     Active Substance: LEVOTHYROXINE
  5. PROAIR HFA [Concomitant]
     Active Substance: ALBUTEROL SULFATE
  6. CLARITIN [Concomitant]
     Active Substance: LORATADINE
  7. XELODA [Suspect]
     Active Substance: CAPECITABINE
     Indication: COLON CANCER
     Dosage: 500 MG 4 TABLETS TWICE A DAY. 14 DAYS ON AND 7 DAYS OFF
     Route: 048
     Dates: start: 20140222
  8. OXYGEN. [Concomitant]
     Active Substance: OXYGEN
  9. OMEPRAZOLE. [Concomitant]
     Active Substance: OMEPRAZOLE
  10. FLOVENT HFA [Concomitant]
     Active Substance: FLUTICASONE PROPIONATE
  11. FOLIC ACID. [Concomitant]
     Active Substance: FOLIC ACID
  12. ATIVAN [Concomitant]
     Active Substance: LORAZEPAM

REACTIONS (12)
  - Headache [Unknown]
  - Vomiting [Unknown]
  - Diarrhoea [Unknown]
  - Constipation [Unknown]
  - Alopecia [Unknown]
  - Nausea [Unknown]
  - Feeding disorder [Unknown]
  - Back pain [Unknown]
  - Nail ridging [Unknown]
  - Malaise [Unknown]
  - Arthralgia [Unknown]
  - Hypersensitivity [Recovered/Resolved]
